FAERS Safety Report 19597399 (Version 1)
Quarter: 2021Q3

REPORT INFORMATION
  Report Type: Spontaneous
  Country: US (occurrence: US)
  Receive Date: 20210721
  Receipt Date: 20210721
  Transmission Date: 20211014
  Serious: Yes (Hospitalization)
  Sender: FDA-Public Use
  Company Number: None

PATIENT
  Age: 72 Year
  Sex: Female
  Weight: 65.86 kg

DRUGS (30)
  1. SEPTRA [Concomitant]
     Active Substance: SULFAMETHOXAZOLE\TRIMETHOPRIM
  2. VALGANCICLOVIR. [Concomitant]
     Active Substance: VALGANCICLOVIR
  3. FUROSEMIDE. [Concomitant]
     Active Substance: FUROSEMIDE
  4. NYSTATIN. [Concomitant]
     Active Substance: NYSTATIN
  5. VITAMIN D [Concomitant]
     Active Substance: VITAMIN D NOS
  6. VITAMIN C [Concomitant]
     Active Substance: ASCORBIC ACID
  7. AZITHROMYCIN ANHYDROUS. [Concomitant]
     Active Substance: AZITHROMYCIN ANHYDROUS
  8. SALBUTAMOL [Concomitant]
     Active Substance: ALBUTEROL
  9. EZETIMIBE 10 MG TEVA [Suspect]
     Active Substance: EZETIMIBE
     Indication: HEPATITIS C
     Route: 048
     Dates: start: 20190302, end: 20190309
  10. OMEGA 3 [Concomitant]
     Active Substance: OMEGA-3 FATTY ACIDS
  11. MIDAZOLAM. [Concomitant]
     Active Substance: MIDAZOLAM
  12. MAVYRET [Suspect]
     Active Substance: GLECAPREVIR\PIBRENTASVIR
     Indication: HEPATITIS C
     Dosage: ?          OTHER STRENGTH: 100/40;?
     Route: 048
     Dates: start: 20190302, end: 20190309
  13. MYFORTIC [Concomitant]
     Active Substance: MYCOPHENOLATE SODIUM
  14. DENOSUMAB [Concomitant]
     Active Substance: DENOSUMAB
  15. XYLOCAINE [Concomitant]
     Active Substance: LIDOCAINE HYDROCHLORIDE
  16. SENNA [Concomitant]
     Active Substance: SENNA LEAF\SENNOSIDES\SENNOSIDES A AND B
  17. ADVAIR HFA [Concomitant]
     Active Substance: FLUTICASONE PROPIONATE\SALMETEROL XINAFOATE
  18. HTYDROMORPHONE [Concomitant]
  19. SPIRIVA [Concomitant]
     Active Substance: TIOTROPIUM BROMIDE MONOHYDRATE
  20. PROGRAF [Concomitant]
     Active Substance: TACROLIMUS
  21. CALCIUM CARBONATE. [Concomitant]
     Active Substance: CALCIUM CARBONATE
  22. FERROUS FUMORATE [Concomitant]
  23. LAX?A?DAY [Concomitant]
     Active Substance: POLYETHYLENE GLYCOL 3350
  24. FENTANYL. [Concomitant]
     Active Substance: FENTANYL
  25. RHEO [Concomitant]
  26. PREDNISONE. [Concomitant]
     Active Substance: PREDNISONE
  27. PANTOPRAZOLE [Concomitant]
     Active Substance: PANTOPRAZOLE
  28. MAGNESIUM [Concomitant]
     Active Substance: MAGNESIUM
  29. GABAPENTIN. [Concomitant]
     Active Substance: GABAPENTIN
  30. ACETAMINOPHEN. [Concomitant]
     Active Substance: ACETAMINOPHEN

REACTIONS (4)
  - Wound secretion [None]
  - Chest pain [None]
  - Therapy cessation [None]
  - Dyspepsia [None]

NARRATIVE: CASE EVENT DATE: 20190322
